FAERS Safety Report 8499412-9 (Version None)
Quarter: 2012Q2

REPORT INFORMATION
  Report Type: 
  Country: None (occurrence: None)
  Receive Date: 20120619
  Receipt Date: 20120608
  Transmission Date: 20120825
  Serious: Yes (Other)
  Sender: FDA-Public Use
  Company Number: 2012032625

PATIENT
  Age: 61 Year
  Sex: Female
  Weight: 79.8331 kg

DRUGS (19)
  1. TRIAMTERE HCTZ (DYAZIDE) [Concomitant]
  2. PREMARIN [Concomitant]
  3. METFFORMIN HYDROCHLORIDE [Concomitant]
  4. CLARINEX (NARINE) [Concomitant]
  5. VITAMIN B12 [Concomitant]
  6. CALCIUM CARBONATE [Concomitant]
  7. HIZENTRA [Suspect]
     Indication: IMMUNODEFICIENCY COMMON VARIABLE
     Dosage: (10 G 1X/WEEK, 2 GM VIA THREE SITES SUBCUTANEOUS), (10 G 1X/WEEK, 4 GM 3 SITES SUBCUTANEOUS)
     Route: 058
     Dates: start: 20120528, end: 20120528
  8. HIZENTRA [Suspect]
     Indication: IMMUNODEFICIENCY COMMON VARIABLE
     Dosage: (10 G 1X/WEEK, 2 GM VIA THREE SITES SUBCUTANEOUS), (10 G 1X/WEEK, 4 GM 3 SITES SUBCUTANEOUS)
     Route: 058
     Dates: start: 20120528, end: 20120528
  9. HIZENTRA [Suspect]
  10. SANCTURA [Concomitant]
  11. RHINOCORT [Concomitant]
  12. VITAMIN D [Concomitant]
  13. FLOVENT HFA [Concomitant]
  14. PROZAC [Concomitant]
  15. CINNAMON (CINNAMON VERUM) [Concomitant]
  16. VYTORIN [Concomitant]
  17. OMEPRAZOLE [Concomitant]
  18. ACETAMINOPHEN [Concomitant]
  19. DILTIAZEM [Concomitant]

REACTIONS (1)
  - RENAL IMPAIRMENT [None]
